FAERS Safety Report 14368402 (Version 5)
Quarter: 2019Q2

REPORT INFORMATION
  Report Type: Report from Study
  Country: JP (occurrence: JP)
  Receive Date: 20180109
  Receipt Date: 20190617
  Transmission Date: 20190711
  Serious: Yes (Other)
  Sender: FDA-Public Use
  Company Number: JP-ACTELION-A-CH2017-165023

PATIENT
  Age: 72 Year
  Sex: Female

DRUGS (16)
  1. VITAMEDIN [Concomitant]
     Active Substance: CYANOCOBALAMIN\PYRIDOXINE HYDROCHLORIDE\THIAMINE
  2. LASIX [Concomitant]
     Active Substance: FUROSEMIDE
  3. LEVOTHYROXINE SODIUM. [Concomitant]
     Active Substance: LEVOTHYROXINE SODIUM
  4. WARFARIN [Concomitant]
     Active Substance: WARFARIN
  5. BERASUS [Concomitant]
     Active Substance: BERAPROST SODIUM
  6. TAKECAB [Concomitant]
     Active Substance: VONOPRAZAN FUMURATE
  7. POTASSIUM CHLORIDE. [Concomitant]
     Active Substance: POTASSIUM CHLORIDE
  8. MAGMITT [Concomitant]
     Active Substance: MAGNESIUM OXIDE
  9. POTASSIUM L ASPARTATE K [Concomitant]
     Active Substance: POTASSIUM ASPARTATE
  10. FUROSEMIDE. [Concomitant]
     Active Substance: FUROSEMIDE
  11. OPSUMIT [Suspect]
     Active Substance: MACITENTAN
     Indication: PULMONARY ARTERIAL HYPERTENSION
     Dosage: 10 MG, QD
     Route: 048
     Dates: start: 20160408
  12. ALDACTONE A [Concomitant]
     Active Substance: SPIRONOLACTONE
  13. ADEMPAS [Concomitant]
     Active Substance: RIOCIGUAT
  14. OXYGEN. [Concomitant]
     Active Substance: OXYGEN
  15. URSODEOXYCHOLIC ACID [Concomitant]
     Active Substance: URSODIOL
  16. THYRADIN S [Concomitant]
     Active Substance: LEVOTHYROXINE SODIUM

REACTIONS (7)
  - Condition aggravated [Recovering/Resolving]
  - Iron deficiency anaemia [Recovered/Resolved]
  - Gastrooesophageal reflux disease [Recovering/Resolving]
  - Hypokalaemia [Recovering/Resolving]
  - Right ventricular failure [Recovering/Resolving]
  - Hypothyroidism [Recovering/Resolving]
  - Concomitant disease aggravated [Recovering/Resolving]

NARRATIVE: CASE EVENT DATE: 20160411
